FAERS Safety Report 18025834 (Version 2)
Quarter: 2022Q2

REPORT INFORMATION
  Report Type: Spontaneous
  Country: US (occurrence: US)
  Receive Date: 20200715
  Receipt Date: 20220428
  Transmission Date: 20220721
  Serious: Yes (Hospitalization, Other)
  Sender: FDA-Public Use
  Company Number: US-BRISTOL-MYERS SQUIBB COMPANY-BMS-2020-055100

PATIENT
  Age: 55 Year
  Sex: Male

DRUGS (6)
  1. TRIAMCINOLONE ACETONIDE [Suspect]
     Active Substance: TRIAMCINOLONE ACETONIDE
     Indication: Synovial cyst
     Dosage: 2 DOSAGE FORM OVER THE NEXT TWO MONTHS
     Route: 014
  2. COBICISTAT [Suspect]
     Active Substance: COBICISTAT
     Indication: HIV infection
     Dosage: UNK
     Route: 065
  3. FLUTICASONE [Suspect]
     Active Substance: FLUTICASONE
     Indication: Nasal congestion
     Dosage: UNK
     Route: 065
  4. ELVITEGRAVIR [Suspect]
     Active Substance: ELVITEGRAVIR
     Indication: HIV infection
     Dosage: UNK
     Route: 065
  5. EMTRICITABINE [Suspect]
     Active Substance: EMTRICITABINE
     Indication: HIV infection
     Dosage: UNK
     Route: 065
  6. TENOFOVIR [Suspect]
     Active Substance: TENOFOVIR
     Indication: HIV infection
     Dosage: UNK
     Route: 065

REACTIONS (8)
  - Pulmonary embolism [Recovering/Resolving]
  - Cushing^s syndrome [Recovering/Resolving]
  - Hypothalamic pituitary adrenal axis suppression [Recovering/Resolving]
  - Drug interaction [Recovering/Resolving]
  - Localised infection [Recovering/Resolving]
  - Ulcer [Recovering/Resolving]
  - Deep vein thrombosis [Recovering/Resolving]
  - Intentional product use issue [Unknown]
